FAERS Safety Report 9051842 (Version 2)
Quarter: 2013Q1

REPORT INFORMATION
  Report Type: Spontaneous
  Country: US (occurrence: US)
  Receive Date: 20130207
  Receipt Date: 20130326
  Transmission Date: 20140127
  Serious: Yes (Hospitalization)
  Sender: FDA-Public Use
  Company Number: US-B.I. PHARMACEUTICALS,INC./RIDGEFIELD-2013-BI-02907BP

PATIENT
  Age: 69 None
  Sex: Male
  Weight: 77.11 kg

DRUGS (4)
  1. PRADAXA [Suspect]
     Indication: ATRIAL FIBRILLATION
     Dosage: 150 MG
     Route: 048
     Dates: start: 201105, end: 20120731
  2. AVODART [Concomitant]
     Dosage: 0.5 MG
     Route: 048
  3. FLOMAX [Concomitant]
     Dosage: 0.4 MG
     Route: 048
  4. METOPROLOL [Concomitant]
     Dosage: 50 MG
     Route: 048

REACTIONS (2)
  - Haemorrhage [Unknown]
  - Subdural haematoma [Unknown]
